FAERS Safety Report 18716028 (Version 1)
Quarter: 2021Q1

REPORT INFORMATION
  Report Type: Report from Study
  Country: MX (occurrence: MX)
  Receive Date: 20210108
  Receipt Date: 20210108
  Transmission Date: 20210419
  Serious: Yes (Death, Other)
  Sender: FDA-Public Use
  Company Number: MX-ASTRAZENECA-2021A002871

PATIENT
  Age: 825 Month
  Sex: Female

DRUGS (1)
  1. TAGRISSO [Suspect]
     Active Substance: OSIMERTINIB
     Indication: LUNG NEOPLASM MALIGNANT
     Route: 048
     Dates: start: 20191109, end: 202004

REACTIONS (1)
  - Death [Fatal]

NARRATIVE: CASE EVENT DATE: 202004
